FAERS Safety Report 10675780 (Version 2)
Quarter: 2015Q1

REPORT INFORMATION
  Report Type: Report from Study
  Country: FR (occurrence: FR)
  Receive Date: 20141225
  Receipt Date: 20150115
  Transmission Date: 20150720
  Serious: Yes (Hospitalization)
  Sender: FDA-Public Use
  Company Number: FR-ROCHE-1512266

PATIENT
  Age: 71 Year

DRUGS (7)
  1. TRASTUZUMAB [Suspect]
     Active Substance: TRASTUZUMAB
     Indication: HER-2 POSITIVE BREAST CANCER
     Dosage: LOADING DOSE
     Route: 042
     Dates: start: 20140304, end: 20140304
  2. ELIQUIS [Concomitant]
     Active Substance: APIXABAN
     Route: 048
     Dates: start: 20141208, end: 20141219
  3. TRASTUZUMAB [Suspect]
     Active Substance: TRASTUZUMAB
     Dosage: MAINTENANCE DOSE, LAST DOSE PRIOR TO SAE 28/NOV/2014,
     Route: 042
     Dates: end: 20141219
  4. ARIMIDEX [Concomitant]
     Active Substance: ANASTROZOLE
     Route: 048
     Dates: start: 20140305
  5. PERTUZUMAB [Suspect]
     Active Substance: PERTUZUMAB
     Indication: HER-2 POSITIVE BREAST CANCER
     Dosage: LOADING DOSE
     Route: 042
     Dates: start: 20140304, end: 20140304
  6. PERTUZUMAB [Suspect]
     Active Substance: PERTUZUMAB
     Dosage: MAINTAINENCE DOSE, LAST DOSE PRIOR TO SAE 28/NOV/2014,
     Route: 042
     Dates: end: 20141219
  7. TAMOREX [Concomitant]
     Route: 048
     Dates: start: 20141219

REACTIONS (1)
  - Pericarditis [Recovered/Resolved]

NARRATIVE: CASE EVENT DATE: 20141207
